FAERS Safety Report 21631630 (Version 1)
Quarter: 2022Q4

REPORT INFORMATION
  Report Type: Spontaneous
  Country: FR (occurrence: FR)
  Receive Date: 20221123
  Receipt Date: 20221123
  Transmission Date: 20230113
  Serious: Yes (Hospitalization, Other)
  Sender: FDA-Public Use
  Company Number: FR-VALIDUS PHARMACEUTICALS LLC-FR-VDP-2022-015829

PATIENT

DRUGS (5)
  1. CEFOTAXIME SODIUM [Suspect]
     Active Substance: CEFOTAXIME SODIUM
     Indication: Lung disorder
     Dosage: UNK
     Route: 042
     Dates: start: 20220816, end: 20220821
  2. SPIRAMYCIN [Suspect]
     Active Substance: SPIRAMYCIN
     Indication: Lung disorder
     Dosage: UNK
     Route: 042
     Dates: start: 20220816, end: 20220821
  3. AMOXICILLIN [Suspect]
     Active Substance: AMOXICILLIN
     Indication: Lung disorder
     Dosage: 6 GRAM, QD
     Route: 048
     Dates: start: 20220822, end: 20220828
  4. CEFEPIME [Suspect]
     Active Substance: CEFEPIME HYDROCHLORIDE
     Indication: Lung disorder
     Dosage: 4 GRAM, QD
     Route: 042
     Dates: start: 20220829, end: 20220902
  5. AUGMENTIN [Suspect]
     Active Substance: AMOXICILLIN\CLAVULANATE POTASSIUM
     Indication: Lung disorder
     Dosage: 1G/125 MG, POWDER FOR ORAL SOLUTION IN SACHET.
     Route: 048
     Dates: start: 20220814, end: 20220815

REACTIONS (1)
  - Clostridium difficile infection [Recovered/Resolved]
